FAERS Safety Report 7414289-8 (Version None)
Quarter: 2011Q2

REPORT INFORMATION
  Report Type: 
  Country: None (occurrence: None)
  Receive Date: 20110411
  Receipt Date: 20110411
  Transmission Date: 20111010
  Serious: Yes (Other)
  Sender: FDA-Public Use
  Company Number: None

PATIENT

DRUGS (1)
  1. PROPOFOL [Suspect]
     Indication: GENERAL ANAESTHESIA
     Dosage: 250 TITRITE TO EFFECT IV BOLUS; 200 TITRITE TO EFFECT IV BOLUS
     Route: 040
     Dates: start: 20110406, end: 20110408

REACTIONS (1)
  - PRODUCT QUALITY ISSUE [None]
